FAERS Safety Report 4860633-5 (Version None)
Quarter: 2005Q4

REPORT INFORMATION
  Report Type: 
  Country: None (occurrence: None)
  Receive Date: 20051216
  Receipt Date: 20051129
  Transmission Date: 20060501
  Serious: Yes (Hospitalization)
  Sender: FDA-Public Use
  Company Number: 200511330BWH

PATIENT
  Age: 56 Year
  Sex: Female

DRUGS (2)
  1. AVELOX [Suspect]
     Indication: PHARYNGITIS
     Dosage: ONCE, ORAL
     Route: 048
     Dates: start: 20040211
  2. INTERFERON INJECTIONS [Concomitant]

REACTIONS (2)
  - ANAPHYLACTIC SHOCK [None]
  - LYMPHADENOPATHY [None]
